FAERS Safety Report 10540858 (Version 1)
Quarter: 2014Q4

REPORT INFORMATION
  Report Type: Spontaneous
  Country: US (occurrence: None)
  Receive Date: 20141010
  Receipt Date: 20141010
  Transmission Date: 20150529
  Serious: No
  Sender: FDA-Public Use
  Company Number: 163-POMAL-14062986

PATIENT
  Age: 81 Year
  Sex: Female
  Weight: 68.95 kg

DRUGS (2)
  1. CYMBALTA (DULOXETINE HYDROCHLORIDE) (CAPSULES) [Concomitant]
  2. POMALYST [Suspect]
     Active Substance: POMALIDOMIDE
     Indication: PLASMA CELL MYELOMA
     Dosage: 4 MG, 21 IN 21 D, PO?
     Route: 048
     Dates: start: 20130514

REACTIONS (2)
  - Oedema peripheral [None]
  - Amnesia [None]
